FAERS Safety Report 14508641 (Version 1)
Quarter: 2018Q1

REPORT INFORMATION
  Report Type: Report from Study
  Country: CO (occurrence: CO)
  Receive Date: 20180209
  Receipt Date: 20180209
  Transmission Date: 20180509
  Serious: Yes (Hospitalization, Other)
  Sender: FDA-Public Use
  Company Number: CO-AMGEN-COLSL2018016439

PATIENT
  Age: 53 Year
  Sex: Female

DRUGS (1)
  1. MIMPARA [Suspect]
     Active Substance: CINACALCET HYDROCHLORIDE
     Indication: HYPERPARATHYROIDISM SECONDARY
     Dosage: UNK
     Route: 048
     Dates: start: 20170228

REACTIONS (2)
  - Infarction [Recovering/Resolving]
  - Bacteraemia [Not Recovered/Not Resolved]

NARRATIVE: CASE EVENT DATE: 20180124
